FAERS Safety Report 11139565 (Version 1)
Quarter: 2015Q2

REPORT INFORMATION
  Report Type: Spontaneous
  Country: US (occurrence: US)
  Receive Date: 20150527
  Receipt Date: 20150527
  Transmission Date: 20150821
  Serious: No
  Sender: FDA-Public Use
  Company Number: US-ASTRAZENECA-2015SE48378

PATIENT
  Age: 54 Year
  Sex: Female
  Weight: 71.7 kg

DRUGS (4)
  1. SYNTHROID [Concomitant]
     Active Substance: LEVOTHYROXINE SODIUM
     Indication: THYROID DISORDER
     Route: 048
  2. SHORT TERM INSULIN [Concomitant]
  3. LANTUS [Concomitant]
     Active Substance: INSULIN GLARGINE
     Dosage: 50
     Route: 048
  4. BYDUREON [Suspect]
     Active Substance: EXENATIDE
     Indication: TYPE 2 DIABETES MELLITUS
     Route: 058
     Dates: start: 201409

REACTIONS (5)
  - Increased appetite [Unknown]
  - Decreased appetite [Unknown]
  - Drug effect decreased [Unknown]
  - Injection site nodule [Unknown]
  - Weight decreased [Unknown]
